FAERS Safety Report 25887660 (Version 1)
Quarter: 2025Q4

REPORT INFORMATION
  Report Type: Report from Study
  Country: US (occurrence: US)
  Receive Date: 20251007
  Receipt Date: 20251007
  Transmission Date: 20260117
  Serious: Yes (Other)
  Sender: ABBVIE
  Company Number: US-ABBVIE-6486885

PATIENT
  Age: 75 Year
  Sex: Female

DRUGS (1)
  1. RINVOQ [Suspect]
     Active Substance: UPADACITINIB
     Indication: Dermatitis atopic
     Route: 048
     Dates: start: 20250516, end: 20250910

REACTIONS (4)
  - Peripheral vein thrombosis [Recovering/Resolving]
  - Vomiting [Unknown]
  - Inflammation [Unknown]
  - Pain in extremity [Unknown]

NARRATIVE: CASE EVENT DATE: 20250101
